FAERS Safety Report 25795355 (Version 1)
Quarter: 2025Q3

REPORT INFORMATION
  Report Type: Spontaneous
  Country: US (occurrence: US)
  Receive Date: 20250912
  Receipt Date: 20250912
  Transmission Date: 20251020
  Serious: Yes (Death, Hospitalization, Other)
  Sender: GRAVITI PHARMACEUTICALS PRIVATE LIMITED
  Company Number: US-GRAVITIPHARMA-GRA-2509-US-LIT-0394

PATIENT
  Age: 29 Year
  Sex: Male

DRUGS (9)
  1. CARVEDILOL [Suspect]
     Active Substance: CARVEDILOL
     Indication: Myopericarditis
     Route: 048
  2. COLCHICINE [Suspect]
     Active Substance: COLCHICINE
     Indication: Myopericarditis
     Route: 048
  3. COLCHICINE [Suspect]
     Active Substance: COLCHICINE
     Route: 065
  4. METHAMPHETAMINE [Concomitant]
     Active Substance: METHAMPHETAMINE
     Indication: Product used for unknown indication
     Route: 065
  5. INSULIN NOS [Concomitant]
     Active Substance: INSULIN NOS
     Indication: Cardiogenic shock
     Route: 065
  6. charcoal (activated charcoal) [Concomitant]
     Indication: Product used for unknown indication
     Route: 065
  7. ZOFRAN [Concomitant]
     Active Substance: ONDANSETRON HYDROCHLORIDE
     Indication: Vomiting
     Route: 065
  8. sodium-chloride (normal saline) [Concomitant]
     Indication: Vomiting
     Route: 065
  9. COCAINE [Concomitant]
     Active Substance: COCAINE
     Route: 065

REACTIONS (5)
  - Cardiogenic shock [Fatal]
  - Bradycardia [Fatal]
  - Overdose [Unknown]
  - Toxicity to various agents [Unknown]
  - Drug abuse [Unknown]
